FAERS Safety Report 12317000 (Version 1)
Quarter: 2016Q2

REPORT INFORMATION
  Report Type: Spontaneous
  Country: US (occurrence: None)
  Receive Date: 20160428
  Receipt Date: 20160428
  Transmission Date: 20160815
  Serious: No
  Sender: FDA-Public Use
  Company Number: None

PATIENT
  Age: 22 Year
  Sex: Female

DRUGS (3)
  1. SUFENTANIL 0.5 MCG/ML BUPIVACAINE [Concomitant]
  2. SUFENTANIL/BUPIVACAINE, 0.5 MCG/ML; 1 MG/ML PHARMADIUM [Suspect]
     Active Substance: BUPIVACAINE\SUFENTANIL
     Indication: DELIVERY
     Route: 008
  3. SUFENTANIL/BUPIVACAINE, 0.5 MCG/ML; 1MG/ML PHARMEDIUM [Suspect]
     Active Substance: BUPIVACAINE\SUFENTANIL
     Route: 008

REACTIONS (2)
  - Product packaging issue [None]
  - Breakthrough pain [None]

NARRATIVE: CASE EVENT DATE: 20160412
